FAERS Safety Report 8070356-X (Version None)
Quarter: 2012Q1

REPORT INFORMATION
  Report Type: 
  Country: None (occurrence: None)
  Receive Date: 20120125
  Receipt Date: 20120119
  Transmission Date: 20120608
  Serious: Yes (Other)
  Sender: FDA-Public Use
  Company Number: US-BAYER-2011-065816

PATIENT
  Sex: Female
  Weight: 65 kg

DRUGS (14)
  1. INSULIN [Concomitant]
     Dosage: UNK
     Route: 042
     Dates: start: 20070723, end: 20070723
  2. HEPARIN [Concomitant]
     Dosage: UNK
     Route: 042
     Dates: start: 20070723, end: 20070723
  3. MAGNESIUM SULFATE [Concomitant]
     Dosage: 2 GRAMS
     Route: 042
     Dates: start: 20070723, end: 20070723
  4. FUROSEMIDE [Concomitant]
     Dosage: 80 MG, QD
  5. POTASSIUM CHLORIDE [Concomitant]
     Dosage: 20 MEQ, BID
  6. DOPAMINE HCL [Concomitant]
     Dosage: UNK
     Route: 042
     Dates: start: 20070723, end: 20070723
  7. TRASYLOL [Suspect]
     Indication: TRICUSPID VALVE REPAIR
     Dosage: LOADING DOSE 200CC FOLLOWED BY 25CC/HR
  8. WARFARIN SODIUM [Concomitant]
  9. DIOVAN [Concomitant]
     Dosage: 80MG
  10. PHENYLEPHRINE HCL [Concomitant]
     Dosage: UNK
     Route: 042
     Dates: start: 20070723, end: 20070723
  11. TRASYLOL [Suspect]
     Indication: AORTIC VALVE REPLACEMENT
     Dosage: TEST DOSE 1ML
     Dates: start: 20070723, end: 20070723
  12. VERAPAMIL [Concomitant]
  13. FENTANYL [Concomitant]
     Dosage: 12MG
     Route: 042
     Dates: start: 20070723, end: 20070723
  14. PROTAMINE SULFATE [Concomitant]
     Dosage: 210MG
     Route: 042
     Dates: start: 20070723, end: 20070723

REACTIONS (5)
  - RENAL FAILURE [None]
  - PAIN [None]
  - INJURY [None]
  - RENAL FAILURE ACUTE [None]
  - RENAL IMPAIRMENT [None]
